FAERS Safety Report 8557678 (Version 3)
Quarter: 2012Q4

REPORT INFORMATION
  Report Type: Report from Study
  Country: DE (occurrence: DE)
  Receive Date: 20120511
  Receipt Date: 20120924
  Transmission Date: 20130627
  Serious: Yes (Hospitalization)
  Sender: FDA-Public Use
  Company Number: DE-BRISTOL-MYERS SQUIBB COMPANY-16567349

PATIENT
  Age: 71 Year
  Sex: Female
  Weight: 90 kg

DRUGS (1)
  1. ORENCIA FOR INJ [Suspect]
     Indication: RHEUMATOID ARTHRITIS
     Dosage: per inf
     Dates: start: 20120120

REACTIONS (4)
  - Ulcer haemorrhage [Recovered/Resolved]
  - Anaemia [Recovered/Resolved]
  - Hyponatraemia [Unknown]
  - Cardiovascular disorder [Recovered/Resolved]
